FAERS Safety Report 15101454 (Version 1)
Quarter: 2018Q3

REPORT INFORMATION
  Report Type: Spontaneous
  Country: US (occurrence: US)
  Receive Date: 20180703
  Receipt Date: 20180703
  Transmission Date: 20181010
  Serious: No
  Sender: FDA-Public Use
  Company Number: US-GLAXOSMITHKLINE-US2018115940

PATIENT
  Age: 58 Year
  Sex: Female

DRUGS (1)
  1. BELIMUMAB SOLUTION FOR INJECTION IN PRE?FILLED PEN [Suspect]
     Active Substance: BELIMUMAB
     Indication: PRODUCT USED FOR UNKNOWN INDICATION
     Dosage: UNK
     Route: 058
     Dates: start: 20180601

REACTIONS (5)
  - Lethargy [Recovering/Resolving]
  - Injection site pain [Not Recovered/Not Resolved]
  - Sinusitis [Recovering/Resolving]
  - Urinary tract infection [Recovering/Resolving]
  - Decreased appetite [Recovering/Resolving]

NARRATIVE: CASE EVENT DATE: 201806
